FAERS Safety Report 4367387-X (Version None)
Quarter: 2004Q2

REPORT INFORMATION
  Report Type: 
  Country: None (occurrence: None)
  Receive Date: 20040528
  Receipt Date: 20040528
  Transmission Date: 20050107
  Serious: Yes (Other)
  Sender: FDA-Public Use
  Company Number: None

PATIENT
  Age: 84 Year
  Sex: Female
  Weight: 82.2 kg

DRUGS (1)
  1. ACETYLCYSTEINE [Suspect]
     Indication: RENAL FAILURE
     Dosage: 1200 MG 1 TIME IV
     Route: 042
     Dates: start: 20040425, end: 20040425

REACTIONS (1)
  - MEDICATION ERROR [None]
